FAERS Safety Report 8951212 (Version 1)
Quarter: 2012Q4

REPORT INFORMATION
  Report Type: 
  Country: CA (occurrence: CA)
  Receive Date: 20121207
  Receipt Date: 20121207
  Transmission Date: 20130627
  Serious: Yes (Other)
  Sender: FDA-Public Use
  Company Number: PHHY2012CA041556

PATIENT
  Sex: Male

DRUGS (1)
  1. SANDOSTATIN LAR [Suspect]
     Indication: NEUROENDOCRINE TUMOUR
     Dosage: 30 mg, every 4 weeks
     Route: 030
     Dates: start: 20120126

REACTIONS (3)
  - Hepatic lesion [Unknown]
  - Tooth injury [Unknown]
  - Dental caries [Unknown]
